FAERS Safety Report 17855362 (Version 2)
Quarter: 2020Q2

REPORT INFORMATION
  Report Type: Spontaneous
  Country: RU (occurrence: RU)
  Receive Date: 20200603
  Receipt Date: 20200625
  Transmission Date: 20200714
  Serious: Yes (Hospitalization, Other)
  Sender: FDA-Public Use
  Company Number: RU-SA-2020SA135442

PATIENT

DRUGS (6)
  1. ANGIOVIT [CYANOCOBALAMIN;FOLIC ACID;PYRIDOXINE HYDROCHLORIDE] [Concomitant]
     Dosage: 1 DF, QD SINCE 9WEEK UNTIL 12 WEEK
     Route: 048
  2. CLEXANE [Suspect]
     Active Substance: ENOXAPARIN SODIUM
     Dosage: 0.4 UNK, TID
     Route: 058
  3. UTROGESTAN [Concomitant]
     Active Substance: PROGESTERONE
     Indication: ABORTION SPONTANEOUS
     Dosage: 600 UG, QD AT NIGHT
     Route: 067
  4. FEMIBION 2 [Concomitant]
     Dosage: 2ND TRIMESTER
     Route: 048
  5. FEMIBION 1 [Concomitant]
     Dosage: 1 ST TRIMESTER
     Route: 048
  6. CANEPHRON [HERBAL EXTRACT NOS] [Concomitant]
     Indication: URINARY TRACT INFECTION
     Dosage: 6 DF, QD SINCE 32 WEEK UNTIL DELIVERY
     Route: 048

REACTIONS (7)
  - Premature separation of placenta [Unknown]
  - Foetal distress syndrome [Unknown]
  - Placental insufficiency [Unknown]
  - Viral infection [Unknown]
  - Abortion threatened [Unknown]
  - Anaemia [Unknown]
  - Exposure during pregnancy [Unknown]
